FAERS Safety Report 5195731-2 (Version None)
Quarter: 2007Q1

REPORT INFORMATION
  Report Type: 
  Country: None (occurrence: None)
  Receive Date: 20070102
  Receipt Date: 20061220
  Transmission Date: 20070707
  Serious: Yes (Hospitalization)
  Sender: FDA-Public Use
  Company Number: FR-ROCHE-472117

PATIENT
  Age: 60 Year
  Sex: Female
  Weight: 55 kg

DRUGS (13)
  1. XELODA [Suspect]
     Route: 048
     Dates: start: 20050515, end: 20060515
  2. XELODA [Suspect]
     Dosage: FIRST CYCLE WAS AT REDUCED DOSAGE.
     Route: 048
     Dates: start: 20060720
  3. XELODA [Suspect]
     Dosage: SECOND CYCLE.
     Route: 048
     Dates: start: 20061019
  4. NAVELBINE [Suspect]
     Dosage: ROUTE: ORAL. FIRST CYCLE AT DAY ONE AND AT DAY EIGHT OF XELODA THERAPY 80 MG NAVELBINE.
     Route: 050
     Dates: start: 20060720
  5. NAVELBINE [Suspect]
     Dosage: RECEIVED BY INJECTION. DECREASED DOSAGE.
     Route: 050
     Dates: start: 20061019
  6. NOVONORM [Concomitant]
     Route: 048
     Dates: start: 19960615
  7. ZOFRAN [Concomitant]
     Indication: ANTIEMETIC SUPPORTIVE CARE
  8. COUMADIN [Concomitant]
     Dates: start: 20060715
  9. METHOTREXATE [Concomitant]
     Dosage: NO RESPONSE.
     Dates: start: 20060615, end: 20060715
  10. ENDOXAN [Concomitant]
     Dosage: NO RESPONSE.
     Dates: start: 20060615, end: 20060715
  11. PRIMPERAN TAB [Concomitant]
     Indication: ANTIEMETIC SUPPORTIVE CARE
  12. POLYETHYLENE GLYCOL [Concomitant]
     Indication: ANTIEMETIC SUPPORTIVE CARE
  13. FUMAFER [Concomitant]

REACTIONS (6)
  - HAEMOLYTIC ANAEMIA [None]
  - HAPTOGLOBIN DECREASED [None]
  - OEDEMA PERIPHERAL [None]
  - PALMAR-PLANTAR ERYTHRODYSAESTHESIA SYNDROME [None]
  - RENAL FAILURE ACUTE [None]
  - THROMBOCYTOPENIA [None]
